FAERS Safety Report 26020089 (Version 1)
Quarter: 2025Q4

REPORT INFORMATION
  Report Type: Spontaneous
  Country: US (occurrence: None)
  Receive Date: 20251108
  Receipt Date: 20251108
  Transmission Date: 20260118
  Serious: No
  Sender: FDA-CTU
  Company Number: None

PATIENT
  Age: 49 Year
  Sex: Male

DRUGS (3)
  1. SERTRALINE HYDROCHLORIDE [Suspect]
     Active Substance: SERTRALINE HYDROCHLORIDE
     Indication: Depression
     Dosage: OTHER QUANTITY : 90 TABLET(S);?FREQUENCY : DAILY;?
     Route: 048
     Dates: start: 20250127
  2. 10 mcg Vitamin D3 (as calcifediol) [Concomitant]
  3. 400IU vitamin E with mixed tocopherols (d-beta, d-delta, d-gamma) [Concomitant]

REACTIONS (4)
  - Hyperhidrosis [None]
  - Night sweats [None]
  - Impaired quality of life [None]
  - Poor quality sleep [None]
